FAERS Safety Report 18523221 (Version 1)
Quarter: 2020Q4

REPORT INFORMATION
  Report Type: Spontaneous
  Country: JP (occurrence: JP)
  Receive Date: 20201119
  Receipt Date: 20201119
  Transmission Date: 20210114
  Serious: Yes (Hospitalization, Other)
  Sender: FDA-Public Use
  Company Number: JP-BRISTOL-MYERS SQUIBB COMPANY-BMS-2020-097394

PATIENT

DRUGS (2)
  1. ELIQUIS [Suspect]
     Active Substance: APIXABAN
     Indication: CEREBROVASCULAR ACCIDENT PROPHYLAXIS
     Dosage: 2.5 MG, 4 TABLETS A DAY
     Route: 048
  2. ELIQUIS [Suspect]
     Active Substance: APIXABAN
     Dosage: 2.5 MG, 2 TABLETS A DAY
     Route: 048

REACTIONS (6)
  - Blood sodium increased [Unknown]
  - Physical deconditioning [Unknown]
  - Dementia [Unknown]
  - Thrombosis [Unknown]
  - Oedema [Unknown]
  - Cerebral infarction [Unknown]
